FAERS Safety Report 20300032 (Version 1)
Quarter: 2022Q1

REPORT INFORMATION
  Report Type: Spontaneous
  Country: US (occurrence: US)
  Receive Date: 20220105
  Receipt Date: 20220105
  Transmission Date: 20220424
  Serious: Yes (Hospitalization, Other)
  Sender: FDA-Public Use
  Company Number: US-VERTEX PHARMACEUTICALS-2021-020418

PATIENT
  Age: 31 Year
  Sex: Male

DRUGS (2)
  1. TRIKAFTA [Suspect]
     Active Substance: ELEXACAFTOR\IVACAFTOR\TEZACAFTOR
     Indication: Cystic fibrosis
     Dosage: ELX/TEZ/IVA 200/100/150 MG IN THE MORNING AND IVA 150 MG IN THE EVENING
     Route: 048
     Dates: start: 201911
  2. TRIKAFTA [Suspect]
     Active Substance: ELEXACAFTOR\IVACAFTOR\TEZACAFTOR
     Dosage: ELX/TEZ/IVA 100/50/75 MG IN THE MORNING
     Route: 048
     Dates: start: 202005, end: 2020

REACTIONS (5)
  - Infective pulmonary exacerbation of cystic fibrosis [Unknown]
  - Abdominal rigidity [Recovered/Resolved]
  - Drug-induced liver injury [Recovering/Resolving]
  - Abdominal pain upper [Recovered/Resolved]
  - Abdominal tenderness [Recovered/Resolved]

NARRATIVE: CASE EVENT DATE: 20191101
